FAERS Safety Report 17854627 (Version 2)
Quarter: 2020Q2

REPORT INFORMATION
  Report Type: Spontaneous
  Country: ES (occurrence: ES)
  Receive Date: 20200603
  Receipt Date: 20200604
  Transmission Date: 20200714
  Serious: Yes (Hospitalization, Other)
  Sender: FDA-Public Use
  Company Number: ES-PFIZER INC-2020212315

PATIENT
  Age: 70 Year
  Sex: Female

DRUGS (8)
  1. DILTIAZEM HCL [Suspect]
     Active Substance: DILTIAZEM HYDROCHLORIDE
     Dosage: UNK
     Route: 065
  2. RALOXIFENE. [Suspect]
     Active Substance: RALOXIFENE
     Dosage: UNK
     Route: 065
  3. IRBESARTAN. [Suspect]
     Active Substance: IRBESARTAN
     Dosage: UNK
     Route: 065
  4. SIMVASTATIN. [Suspect]
     Active Substance: SIMVASTATIN
     Dosage: UNK
     Route: 065
  5. DESVENLAFAXINE SUCCINATE MONOHYDRATE [Suspect]
     Active Substance: DESVENLAFAXINE SUCCINATE
     Dosage: UNK
     Route: 065
  6. OMEPRAZOLE. [Suspect]
     Active Substance: OMEPRAZOLE
     Dosage: UNK
     Route: 065
  7. BROMAZEPAM [Suspect]
     Active Substance: BROMAZEPAM
     Dosage: UNK
     Route: 065
  8. TRIFLUSAL [Suspect]
     Active Substance: TRIFLUSAL
     Dosage: UNK
     Route: 065

REACTIONS (1)
  - Insulinoma [Recovered/Resolved]
